FAERS Safety Report 5375249-4 (Version None)
Quarter: 2007Q2

REPORT INFORMATION
  Report Type: 
  Country: None (occurrence: None)
  Receive Date: 20070622
  Receipt Date: 20070330
  Transmission Date: 20071010
  Serious: Yes (Other)
  Sender: FDA-Public Use
  Company Number: PHEH2007US03784

PATIENT
  Age: 38 Year
  Sex: Female

DRUGS (1)
  1. FOCALIN XR [Suspect]
     Dosage: INHALATION
     Route: 055

REACTIONS (6)
  - ANOREXIA [None]
  - DELUSION [None]
  - INCORRECT ROUTE OF DRUG ADMINISTRATION [None]
  - INSOMNIA [None]
  - INTENTIONAL DRUG MISUSE [None]
  - PARANOIA [None]
